FAERS Safety Report 4886770-7 (Version None)
Quarter: 2005Q4

REPORT INFORMATION
  Report Type: 
  Country: None (occurrence: None)
  Receive Date: 20051220
  Receipt Date: 20050126
  Transmission Date: 20060501
  Serious: Yes (Other)
  Sender: FDA-Public Use
  Company Number: HQWYE114408MAY03

PATIENT
  Age: 40 Year
  Sex: Male
  Weight: 90.8 kg

DRUGS (6)
  1. EFFEXOR XR [Suspect]
     Indication: DEPRESSION
     Dosage: 75 MG 3X PER 1 DAY, ORAL
     Route: 048
     Dates: start: 20020719, end: 20040101
  2. EFFEXOR XR [Suspect]
     Indication: PANIC ATTACK
     Dosage: 75 MG 3X PER 1 DAY, ORAL
     Route: 048
     Dates: start: 20020719, end: 20040101
  3. KLONOPIN [Concomitant]
  4. GABITRIL [Concomitant]
  5. LOPRESSOR [Concomitant]
  6. VALDECOXIB [Concomitant]

REACTIONS (5)
  - DIABETES MELLITUS INSULIN-DEPENDENT [None]
  - EXOSTOSIS [None]
  - NERVOUS SYSTEM DISORDER [None]
  - THYROIDITIS [None]
  - VISUAL DISTURBANCE [None]
